FAERS Safety Report 10516795 (Version 2)
Quarter: 2014Q4

REPORT INFORMATION
  Report Type: Report from Study
  Country: GB (occurrence: GB)
  Receive Date: 20141014
  Receipt Date: 20141203
  Transmission Date: 20150528
  Serious: Yes (Disabling)
  Sender: FDA-Public Use
  Company Number: GB-GLAXOSMITHKLINE-GB2014003669

PATIENT

DRUGS (2)
  1. FLUTICASONE PROPIONATE+SALMETEROL XINAFOATE [Suspect]
     Active Substance: FLUTICASONE PROPIONATE\SALMETEROL XINAFOATE
     Indication: ASTHMA
     Dosage: 500/50 UG, BID
     Route: 055
     Dates: start: 20140514
  2. SERETIDE [Concomitant]
     Active Substance: FLUTICASONE FUROATE\SALMETEROL XINAFOATE
     Indication: ASTHMA
     Dosage: 500/50 004 BID
     Route: 055
     Dates: start: 20140128, end: 20140514

REACTIONS (1)
  - Hand fracture [Recovered/Resolved]

NARRATIVE: CASE EVENT DATE: 20140927
